FAERS Safety Report 11230585 (Version 2)
Quarter: 2015Q4

REPORT INFORMATION
  Report Type: Spontaneous
  Country: CH (occurrence: CH)
  Receive Date: 20150701
  Receipt Date: 20151116
  Transmission Date: 20160304
  Serious: Yes (Hospitalization, Other)
  Sender: FDA-Public Use
  Company Number: CH-TEVA-573504ISR

PATIENT
  Age: 65 Year
  Sex: Female

DRUGS (3)
  1. ATORVASTATIN [Suspect]
     Active Substance: ATORVASTATIN
     Route: 065
  2. AMLODIPINE [Suspect]
     Active Substance: AMLODIPINE BESYLATE
     Route: 065
  3. ACETYLSALICYLIC ACID [Concomitant]
     Active Substance: ASPIRIN
     Dosage: DOSE 100 MG
     Route: 065

REACTIONS (9)
  - Cerebral ischaemia [Unknown]
  - Arterial occlusive disease [Unknown]
  - Aortic valve incompetence [Unknown]
  - Peripheral embolism [Unknown]
  - Atrial fibrillation [Unknown]
  - Tachycardia [Unknown]
  - Bacterial test positive [Unknown]
  - Endocarditis [Unknown]
  - Periodontitis [Unknown]
